FAERS Safety Report 9173323 (Version 1)
Quarter: 2013Q1

REPORT INFORMATION
  Report Type: Spontaneous
  Country: ES (occurrence: None)
  Receive Date: 20130314
  Receipt Date: 20130314
  Transmission Date: 20140127
  Serious: Yes (Hospitalization, Other)
  Sender: FDA-Public Use
  Company Number: COL_13265_2013

PATIENT
  Age: 8 Year
  Sex: Female

DRUGS (1)
  1. DURAPHAT [Suspect]
     Indication: DENTAL CARIES
     Dosage: (NI/ 3 TIMES/ ORAL)
     Route: 048

REACTIONS (2)
  - Angioedema [None]
  - Urticaria [None]
